FAERS Safety Report 23220987 (Version 1)
Quarter: 2023Q4

REPORT INFORMATION
  Report Type: Report from Study
  Country: HU (occurrence: HU)
  Receive Date: 20231123
  Receipt Date: 20231123
  Transmission Date: 20240110
  Serious: Yes (Hospitalization)
  Sender: FDA-Public Use
  Company Number: HU-AstraZeneca-2023A261937

PATIENT
  Age: 366 Day
  Sex: Female
  Weight: 8.5 kg

DRUGS (3)
  1. SYNAGIS [Suspect]
     Active Substance: PALIVIZUMAB
     Indication: Respiratory syncytial virus infection
     Dosage: UNKNOWN
     Route: 030
     Dates: start: 20221111
  2. SYNAGIS [Suspect]
     Active Substance: PALIVIZUMAB
     Dosage: UNKNOWN
     Route: 030
     Dates: start: 20230310
  3. SYNAGIS [Suspect]
     Active Substance: PALIVIZUMAB
     Dosage: UNKNOWN
     Route: 030
     Dates: start: 20231115

REACTIONS (3)
  - Febrile convulsion [Recovered/Resolved]
  - Administration site discolouration [Unknown]
  - Administration site pruritus [Unknown]

NARRATIVE: CASE EVENT DATE: 20230310
